FAERS Safety Report 9075908 (Version 1)
Quarter: 2013Q1

REPORT INFORMATION
  Report Type: Report from Study
  Country: US (occurrence: US)
  Receive Date: 20130129
  Receipt Date: 20130129
  Transmission Date: 20140127
  Serious: No
  Sender: FDA-Public Use
  Company Number: US-ABBOTT-12P-163-0941505-00

PATIENT
  Age: 73 Year
  Sex: Female

DRUGS (5)
  1. HUMIRA 40 MG/0.8 ML PEN [Suspect]
     Indication: CROHN^S DISEASE
     Dates: start: 20120303
  2. PROPRANOLOL [Concomitant]
     Indication: HYPERTENSION
  3. TRIAMTERENE/HCTZ [Concomitant]
     Indication: HYPERTENSION
     Dosage: 37.5MG DAILY
     Route: 048
  4. FOSAMAX [Concomitant]
     Indication: OSTEOPOROSIS
  5. PROBIOTIC [Concomitant]
     Indication: CROHN^S DISEASE
     Dosage: DAILY
     Route: 048

REACTIONS (2)
  - Night sweats [Recovering/Resolving]
  - Injection site urticaria [Recovering/Resolving]
